FAERS Safety Report 7936483-X (Version None)
Quarter: 2011Q4

REPORT INFORMATION
  Report Type: 
  Country: None (occurrence: None)
  Receive Date: 20111123
  Receipt Date: 20111117
  Transmission Date: 20120403
  Serious: Yes (Hospitalization)
  Sender: FDA-Public Use
  Company Number: US-SANOFI-AVENTIS-2011SA075780

PATIENT
  Age: 67 Year
  Sex: Female

DRUGS (2)
  1. PLAVIX [Suspect]
     Indication: CEREBROVASCULAR ACCIDENT PROPHYLAXIS
     Dates: start: 20111103, end: 20111112
  2. SERUMLIPIDREDUCING AGENTS [Concomitant]
     Dates: start: 20111103

REACTIONS (1)
  - PSYCHOTIC DISORDER [None]
